FAERS Safety Report 9515759 (Version 1)
Quarter: 2013Q1

REPORT INFORMATION
  Report Type: Spontaneous
  Country: US (occurrence: None)
  Receive Date: 20130305
  Receipt Date: 20130305
  Transmission Date: 20140127
  Serious: Yes (Other)
  Sender: FDA-Public Use
  Company Number: 163-21880-12120865

PATIENT
  Age: 65 Year
  Sex: Male
  Weight: 102.97 kg

DRUGS (5)
  1. REVLIMID [Suspect]
     Indication: PLASMA CELL MYELOMA
     Dosage: 1 IN 1 D
     Route: 048
     Dates: start: 20110201, end: 20121126
  2. ACYCLOVIR (ACYCLOVIR) (UNNOWN) [Concomitant]
  3. ASPIRIN (ACETYLSALICYLIC ACID) (TABLETS) [Concomitant]
  4. CALCIUM CITRATE VITAMIN D (CALCIUM CITRATE W/COLECALCIFEROL) (UNKNOWN) [Concomitant]
  5. AREDIA (PAMIDRONATE DISODIUM) (UNKNOWN) [Concomitant]

REACTIONS (6)
  - Pain in extremity [None]
  - Gait disturbance [None]
  - Pain in extremity [None]
  - Pain in jaw [None]
  - Chest pain [None]
  - Dyspepsia [None]
